FAERS Safety Report 17799927 (Version 1)
Quarter: 2020Q2

REPORT INFORMATION
  Report Type: Spontaneous
  Country: US (occurrence: US)
  Receive Date: 20200518
  Receipt Date: 20200518
  Transmission Date: 20200714
  Serious: No
  Sender: FDA-Public Use
  Company Number: US-009507513-2005USA003691

PATIENT
  Age: 39 Year
  Sex: Male

DRUGS (13)
  1. REMERON [Suspect]
     Active Substance: MIRTAZAPINE
     Indication: ILLUSION
  2. QUETIAPINE FUMARATE. [Concomitant]
     Active Substance: QUETIAPINE FUMARATE
     Indication: ILLUSION
  3. QUETIAPINE FUMARATE. [Concomitant]
     Active Substance: QUETIAPINE FUMARATE
     Indication: FEELING OF DESPAIR
  4. OXYCODONE [Concomitant]
     Active Substance: OXYCODONE
     Indication: PAIN
  5. REMERON [Suspect]
     Active Substance: MIRTAZAPINE
     Indication: SUICIDAL IDEATION
  6. REMERON [Suspect]
     Active Substance: MIRTAZAPINE
     Indication: BIPOLAR DISORDER
  7. QUETIAPINE FUMARATE. [Concomitant]
     Active Substance: QUETIAPINE FUMARATE
     Indication: SUICIDAL IDEATION
  8. METHADONE HYDROCHLORIDE. [Concomitant]
     Active Substance: METHADONE HYDROCHLORIDE
     Indication: PAIN
  9. PRAZOSIN. [Concomitant]
     Active Substance: PRAZOSIN
  10. REMERON [Suspect]
     Active Substance: MIRTAZAPINE
     Indication: FEELING OF DESPAIR
  11. QUETIAPINE FUMARATE. [Concomitant]
     Active Substance: QUETIAPINE FUMARATE
     Indication: BIPOLAR DISORDER
  12. QUETIAPINE FUMARATE. [Concomitant]
     Active Substance: QUETIAPINE FUMARATE
     Indication: ANHEDONIA
  13. REMERON [Suspect]
     Active Substance: MIRTAZAPINE
     Indication: ANHEDONIA
     Route: 048

REACTIONS (1)
  - Product use in unapproved indication [Unknown]
